FAERS Safety Report 9607014 (Version 1)
Quarter: 2013Q4

REPORT INFORMATION
  Report Type: Spontaneous
  Country: BR (occurrence: BR)
  Receive Date: 20131009
  Receipt Date: 20131009
  Transmission Date: 20140711
  Serious: Yes (Other)
  Sender: FDA-Public Use
  Company Number: BR-AMGEN-BRASP2013070627

PATIENT
  Age: 54 Year
  Sex: Male
  Weight: 89 kg

DRUGS (2)
  1. ENBREL [Suspect]
     Indication: ANKYLOSING SPONDYLITIS
     Dosage: 50 MG, WEEKLY
     Route: 058
     Dates: start: 201305
  2. ENALAPRIL [Concomitant]
     Dosage: 1 TABLET OF AN UNSPECIFIED DOSAGE THREE TIMES A DAY
     Route: 048

REACTIONS (1)
  - Umbilical hernia [Unknown]
